FAERS Safety Report 18011494 (Version 3)
Quarter: 2020Q3

REPORT INFORMATION
  Report Type: Spontaneous
  Country: US (occurrence: US)
  Receive Date: 20200713
  Receipt Date: 20200727
  Transmission Date: 20201103
  Serious: Yes (Other)
  Sender: FDA-Public Use
  Company Number: US-ELI_LILLY_AND_COMPANY-US202007002070

PATIENT
  Age: 78 Year
  Sex: Female

DRUGS (6)
  1. HUMALOG [Suspect]
     Active Substance: INSULIN LISPRO
     Dosage: 10 U, OTHER (TAKES BETWEEN 8?10 UNITS)
     Route: 058
     Dates: start: 1957
  2. REPATHA [Concomitant]
     Active Substance: EVOLOCUMAB
     Indication: PRODUCT USED FOR UNKNOWN INDICATION
     Dosage: UNK, UNKNOWN
     Route: 065
  3. HUMALOG [Suspect]
     Active Substance: INSULIN LISPRO
     Indication: TYPE 1 DIABETES MELLITUS
     Dosage: 8 U, OTHER (TAKES BETWEEN 8?10 UNITS)
     Route: 058
     Dates: start: 1957
  4. HUMALOG [Suspect]
     Active Substance: INSULIN LISPRO
     Dosage: 10 U, OTHER (TAKES BETWEEN 8?10 UNITS)
     Route: 058
     Dates: start: 20200713
  5. HUMALOG [Suspect]
     Active Substance: INSULIN LISPRO
     Dosage: 8 U, OTHER (TAKES BETWEEN 8?10 UNITS)
     Route: 058
     Dates: start: 20200713
  6. LANTUS [Concomitant]
     Active Substance: INSULIN GLARGINE
     Indication: DIABETES MELLITUS
     Dosage: 12 U, DAILY
     Route: 065

REACTIONS (8)
  - Blood glucose increased [Recovering/Resolving]
  - Mood altered [Unknown]
  - Incorrect dose administered [Not Recovered/Not Resolved]
  - Blood glucose increased [Not Recovered/Not Resolved]
  - Diabetic complication [Unknown]
  - Anger [Unknown]
  - Frustration tolerance decreased [Unknown]
  - Humerus fracture [Unknown]

NARRATIVE: CASE EVENT DATE: 202006
